FAERS Safety Report 5880322-8 (Version None)
Quarter: 2008Q3

REPORT INFORMATION
  Report Type: 
  Country: None (occurrence: None)
  Receive Date: 20080912
  Receipt Date: 20080902
  Transmission Date: 20090109
  Serious: Yes (Hospitalization)
  Sender: FDA-Public Use
  Company Number: AU-PFIZER INC-2008074523

PATIENT
  Sex: Male

DRUGS (9)
  1. CHANTIX [Suspect]
     Dates: start: 20080801, end: 20080831
  2. AMIODARONE HCL [Concomitant]
  3. CADUET [Concomitant]
  4. CARTIA XT [Concomitant]
  5. FRUSEMIDE [Concomitant]
  6. ISOSORBIDE [Concomitant]
  7. MONODUR [Concomitant]
  8. PLAVIX [Concomitant]
  9. RAMACE [Concomitant]

REACTIONS (4)
  - CHEST DISCOMFORT [None]
  - DIZZINESS [None]
  - DYSPNOEA [None]
  - HEART RATE INCREASED [None]
